FAERS Safety Report 8821472 (Version 1)
Quarter: 2012Q4

REPORT INFORMATION
  Report Type: 
  Country: DE (occurrence: DE)
  Receive Date: 20121002
  Receipt Date: 20121002
  Transmission Date: 20130627
  Serious: Yes (Other)
  Sender: FDA-Public Use
  Company Number: GXKR2012DE003073

PATIENT
  Age: 56 Year
  Sex: Female

DRUGS (2)
  1. AMOCLAV [Suspect]
     Indication: TOOTH DISORDER
     Route: 065
  2. MELOXICAM [Suspect]
     Indication: PAIN
     Route: 065

REACTIONS (3)
  - Hypothyroidism [Unknown]
  - Hypokalaemia [Unknown]
  - Stevens-Johnson syndrome [Unknown]
